FAERS Safety Report 5205920-6 (Version None)
Quarter: 2007Q1

REPORT INFORMATION
  Report Type: 
  Country: None (occurrence: None)
  Receive Date: 20070111
  Receipt Date: 20070104
  Transmission Date: 20070707
  Serious: Yes (Hospitalization)
  Sender: FDA-Public Use
  Company Number: US-AMGEN-US205543

PATIENT
  Age: 61 Year
  Sex: Female

DRUGS (10)
  1. VECTIBIX [Suspect]
     Indication: COLORECTAL CANCER
     Route: 042
     Dates: start: 20061201
  2. EMEND [Concomitant]
     Route: 065
  3. ZOMETA [Concomitant]
     Route: 065
  4. COUMADIN [Concomitant]
     Route: 065
  5. OXYCODONE HCL [Concomitant]
     Route: 065
  6. NEXIUM [Concomitant]
     Route: 065
  7. PAXIL [Concomitant]
     Route: 065
  8. CALCIUM [Concomitant]
     Route: 065
  9. VITAMINS [Concomitant]
     Route: 065
  10. MAGNESIUM [Concomitant]
     Route: 065

REACTIONS (1)
  - CHEST PAIN [None]
